FAERS Safety Report 13172463 (Version 2)
Quarter: 2017Q1

REPORT INFORMATION
  Report Type: Report from Study
  Country: None (occurrence: US)
  Receive Date: 20170201
  Receipt Date: 20170321
  Transmission Date: 20170428
  Serious: Yes (Hospitalization)
  Sender: FDA-Public Use
  Company Number: US-ABBVIE-16K-163-1804112-00

PATIENT
  Sex: Female

DRUGS (3)
  1. HUMIRA [Suspect]
     Active Substance: ADALIMUMAB
     Route: 058
     Dates: start: 2016, end: 20170206
  2. HUMIRA [Suspect]
     Active Substance: ADALIMUMAB
     Route: 058
     Dates: start: 20170206
  3. HUMIRA [Suspect]
     Active Substance: ADALIMUMAB
     Indication: CROHN^S DISEASE
     Route: 058
     Dates: start: 20160205, end: 2016

REACTIONS (19)
  - Urinary tract infection [Unknown]
  - Anorectal infection [Unknown]
  - Rectal haemorrhage [Unknown]
  - Haematochezia [Unknown]
  - Proctitis [Unknown]
  - Vomiting [Unknown]
  - Depressed mood [Unknown]
  - Drug effect incomplete [Unknown]
  - Abdominal abscess [Unknown]
  - Constipation [Unknown]
  - Nausea [Unknown]
  - Staphylococcal infection [Unknown]
  - Abdominal pain [Unknown]
  - Diarrhoea [Unknown]
  - Decreased appetite [Unknown]
  - Weight decreased [Unknown]
  - Clostridium difficile infection [Unknown]
  - Activities of daily living impaired [Unknown]
  - Pyrexia [Unknown]

NARRATIVE: CASE EVENT DATE: 2016
